FAERS Safety Report 5515083-5 (Version None)
Quarter: 2007Q4

REPORT INFORMATION
  Report Type: 
  Country: None (occurrence: None)
  Receive Date: 20071113
  Receipt Date: 20061220
  Transmission Date: 20080405
  Serious: No
  Sender: FDA-Public Use
  Company Number: A0632302A

PATIENT
  Age: 84 Year
  Sex: Male

DRUGS (5)
  1. COREG [Suspect]
     Dosage: 3.125MG TWICE PER DAY
     Route: 048
     Dates: start: 20060928, end: 20061201
  2. ACTOS [Concomitant]
  3. FUROSEMIDE [Concomitant]
  4. GLYBURIDE [Concomitant]
  5. NORVASC [Concomitant]

REACTIONS (2)
  - DYSPNOEA [None]
  - PALPITATIONS [None]
